FAERS Safety Report 22009996 (Version 2)
Quarter: 2023Q2

REPORT INFORMATION
  Report Type: Report from Study
  Country: US (occurrence: None)
  Receive Date: 20230220
  Receipt Date: 20230410
  Transmission Date: 20230722
  Serious: Yes (Hospitalization)
  Sender: FDA-Public Use
  Company Number: US-ROCHE-3284551

PATIENT
  Age: 61 Year
  Sex: Female
  Weight: 78.3 kg

DRUGS (2)
  1. COBIMETINIB [Suspect]
     Active Substance: COBIMETINIB
     Indication: Pancreatic carcinoma metastatic
     Route: 048
     Dates: start: 20230208
  2. CALASPARGASE PEGOL-MKNL [Suspect]
     Active Substance: CALASPARGASE PEGOL-MKNL
     Indication: Pancreatic carcinoma metastatic
     Route: 042
     Dates: start: 20230208, end: 20230208

REACTIONS (2)
  - Sepsis [Recovering/Resolving]
  - Infusion related reaction [Unknown]

NARRATIVE: CASE EVENT DATE: 20230208
